FAERS Safety Report 10012350 (Version 1)
Quarter: 2014Q1

REPORT INFORMATION
  Report Type: Spontaneous
  Country: FR (occurrence: FR)
  Receive Date: 20140314
  Receipt Date: 20140314
  Transmission Date: 20141002
  Serious: Yes (Hospitalization, Other)
  Sender: FDA-Public Use
  Company Number: FR-ROXANE LABORATORIES, INC.-2014-RO-00409RO

PATIENT
  Age: 72 Year
  Sex: Female

DRUGS (3)
  1. FLECAINIDE [Suspect]
     Indication: PRODUCT USED FOR UNKNOWN INDICATION
     Dosage: 200 MG
     Route: 065
  2. IRBESARTAN [Suspect]
     Indication: PRODUCT USED FOR UNKNOWN INDICATION
     Dosage: 300 MG
     Route: 065
  3. HALOPERIDOL [Suspect]
     Indication: PRODUCT USED FOR UNKNOWN INDICATION
     Dosage: 2 MG
     Route: 065

REACTIONS (7)
  - Toxicity to various agents [Recovered/Resolved]
  - Ventricular tachycardia [Recovered/Resolved]
  - Bundle branch block left [Recovered/Resolved]
  - Electrocardiogram QRS complex prolonged [Recovered/Resolved]
  - Cardiac failure congestive [Recovered/Resolved]
  - Renal failure [Unknown]
  - Metabolic acidosis [Unknown]
